FAERS Safety Report 9039308 (Version 1)
Quarter: 2013Q1

REPORT INFORMATION
  Report Type: Report from Study
  Country: US (occurrence: US)
  Receive Date: 20130129
  Receipt Date: 20130129
  Transmission Date: 20140127
  Serious: No
  Sender: FDA-Public Use
  Company Number: US-ABBOTT-12P-163-0931596-00

PATIENT
  Age: 50 Year
  Sex: Male

DRUGS (7)
  1. HUMIRA 40 MG/0.8 ML PEN [Suspect]
     Indication: RHEUMATOID ARTHRITIS
     Dosage: INITIAL DOSE
     Dates: start: 20120419
  2. HUMIRA 40 MG/0.8 ML PEN [Suspect]
     Dates: start: 20120508
  3. METHOTREXATE [Concomitant]
     Indication: PRODUCT USED FOR UNKNOWN INDICATION
     Dosage: 8 TABLETS WEEKLY
  4. METOPROLOL [Concomitant]
     Indication: HYPERTENSION
     Dosage: DAILY
  5. PREDNISONE [Concomitant]
     Indication: PRODUCT USED FOR UNKNOWN INDICATION
     Dosage: 5MG IN THE MORNING
  6. PREDNISONE [Concomitant]
     Dosage: 2.5MG AT NIGHT
  7. ALEVE [Concomitant]
     Indication: PAIN

REACTIONS (4)
  - Throat irritation [Recovering/Resolving]
  - Upper respiratory tract infection [Recovering/Resolving]
  - Pharyngeal disorder [Recovering/Resolving]
  - Sinus congestion [Recovering/Resolving]
